FAERS Safety Report 19998036 (Version 1)
Quarter: 2021Q4

REPORT INFORMATION
  Report Type: Report from Study
  Country: EG (occurrence: EG)
  Receive Date: 20211026
  Receipt Date: 20211026
  Transmission Date: 20220303
  Serious: Yes (Other)
  Sender: FDA-Public Use
  Company Number: EG-NOVARTISPH-NVSC2021EG236015

PATIENT
  Age: 49 Year
  Sex: Female

DRUGS (5)
  1. GILENYA [Suspect]
     Active Substance: FINGOLIMOD HYDROCHLORIDE
     Indication: Multiple sclerosis
     Dosage: 0.5 MG, QD
     Route: 048
     Dates: start: 202104
  2. TEGRETOL [Concomitant]
     Active Substance: CARBAMAZEPINE
     Indication: Analgesic therapy
     Dosage: UNK, QD
     Route: 048
     Dates: start: 20211009
  3. OMEGA-3 FATTY ACIDS [Concomitant]
     Active Substance: OMEGA-3 FATTY ACIDS
     Indication: Supplementation therapy
     Dosage: UNK
     Route: 048
  4. DEPOVIT B12 [Concomitant]
     Indication: Supplementation therapy
     Dosage: UNK, EVERY 3 DAYS
     Route: 065
     Dates: start: 201906
  5. CIPROFLOXACIN [Concomitant]
     Active Substance: CIPROFLOXACIN
     Indication: Product used for unknown indication
     Dosage: UNK, BID
     Route: 065
     Dates: start: 20211009

REACTIONS (10)
  - Pain in extremity [Not Recovered/Not Resolved]
  - Visual impairment [Not Recovered/Not Resolved]
  - Memory impairment [Not Recovered/Not Resolved]
  - Tongue discomfort [Not Recovered/Not Resolved]
  - Ophthalmic vein thrombosis [Not Recovered/Not Resolved]
  - Retinal exudates [Not Recovered/Not Resolved]
  - Eye pain [Not Recovered/Not Resolved]
  - Dysphemia [Not Recovered/Not Resolved]
  - Hypertonic bladder [Unknown]
  - Insomnia [Unknown]

NARRATIVE: CASE EVENT DATE: 20210401
